FAERS Safety Report 19614811 (Version 1)
Quarter: 2021Q3

REPORT INFORMATION
  Report Type: Spontaneous
  Country: US (occurrence: US)
  Receive Date: 20210726
  Receipt Date: 20210726
  Transmission Date: 20211014
  Serious: No
  Sender: FDA-Public Use
  Company Number: None

PATIENT
  Age: 74 Year
  Sex: Male

DRUGS (1)
  1. OXALIPLATIN (OXALIPLATIN 100MG/VIL (PF) INJ) [Suspect]
     Active Substance: OXALIPLATIN
     Dosage: ?          OTHER STRENGTH:100MG/VIL;?
     Route: 042
     Dates: start: 20210420, end: 20210510

REACTIONS (5)
  - Anaphylactic reaction [None]
  - Cough [None]
  - Wheezing [None]
  - Hypotension [None]
  - Confusional state [None]

NARRATIVE: CASE EVENT DATE: 20210510
